FAERS Safety Report 9516797 (Version 1)
Quarter: 2013Q2

REPORT INFORMATION
  Report Type: Spontaneous
  Country: US (occurrence: None)
  Receive Date: 20130410
  Receipt Date: 20130410
  Transmission Date: 20140414
  Serious: No
  Sender: FDA-Public Use
  Company Number: 2135225-2013-00012

PATIENT
  Age: 51 Year
  Sex: 0

DRUGS (2)
  1. ETILEFRINE [Suspect]
     Dosage: LIQUID MAX
  2. AETHOXYSKLEROL [Suspect]

REACTIONS (3)
  - Dizziness [None]
  - Feeling abnormal [None]
  - Cardiovascular disorder [None]
